FAERS Safety Report 9008289 (Version 1)
Quarter: 2013Q1

REPORT INFORMATION
  Report Type: Spontaneous
  Country: US (occurrence: US)
  Receive Date: 20130111
  Receipt Date: 20130111
  Transmission Date: 20140127
  Serious: Yes (Other)
  Sender: FDA-Public Use
  Company Number: US-BAYER-2012-133427

PATIENT
  Age: 88 Year
  Sex: Female
  Weight: 72.58 kg

DRUGS (4)
  1. XARELTO [Suspect]
     Indication: CEREBROVASCULAR ACCIDENT PROPHYLAXIS
     Dosage: 10 MG, UNK
     Route: 048
     Dates: start: 20121121
  2. XARELTO [Interacting]
     Indication: ATRIAL FIBRILLATION
     Dosage: 15 MG, QD
     Route: 048
     Dates: start: 201204
  3. XARELTO [Interacting]
     Indication: CEREBROVASCULAR ACCIDENT PROPHYLAXIS
     Dosage: 20 MG, QD
     Route: 048
  4. ACETYLSALICYLIC ACID({=100 MG) [Interacting]
     Dosage: 81 MG, UNK
     Route: 065

REACTIONS (1)
  - Intraocular haematoma [Recovered/Resolved]
